FAERS Safety Report 15904463 (Version 1)
Quarter: 2019Q1

REPORT INFORMATION
  Report Type: Spontaneous
  Country: GB (occurrence: GB)
  Receive Date: 20190204
  Receipt Date: 20190204
  Transmission Date: 20190417
  Serious: Yes (Hospitalization)
  Sender: FDA-Public Use
  Company Number: GB-ACCORD-105253

PATIENT
  Age: 53 Year

DRUGS (13)
  1. LETROZOLE. [Suspect]
     Active Substance: LETROZOLE
     Indication: BREAST CANCER
     Route: 048
  2. ACTAVIS UK AMITRIPTYLINE [Concomitant]
  3. CODEINE [Concomitant]
     Active Substance: CODEINE
  4. LEVOTHYROXINE. [Concomitant]
     Active Substance: LEVOTHYROXINE
  5. ADCAL [Concomitant]
     Active Substance: CALCIUM CARBONATE
  6. PALBOCICLIB [Suspect]
     Active Substance: PALBOCICLIB
     Indication: CHEMOTHERAPY
     Route: 042
  7. DENOSUMAB [Concomitant]
     Active Substance: DENOSUMAB
  8. SERTRALINE [Concomitant]
     Active Substance: SERTRALINE HYDROCHLORIDE
  9. SALBUTAMOL [Concomitant]
     Active Substance: ALBUTEROL
  10. ACTAVIS UK IBUPROFEN [Concomitant]
  11. PARACETAMOL [Concomitant]
     Active Substance: ACETAMINOPHEN
  12. OMEPRAZOLE. [Concomitant]
     Active Substance: OMEPRAZOLE
  13. METOCLOPRAMIDE. [Concomitant]
     Active Substance: METOCLOPRAMIDE

REACTIONS (1)
  - Neutropenia [Unknown]
